FAERS Safety Report 6572693-4 (Version None)
Quarter: 2010Q1

REPORT INFORMATION
  Report Type: 
  Country: None (occurrence: None)
  Receive Date: 20100205
  Receipt Date: 20100125
  Transmission Date: 20100710
  Serious: Yes (Death, Hospitalization)
  Sender: FDA-Public Use
  Company Number: US-JNJFOC-20040604286

PATIENT
  Sex: Female
  Weight: 10.1 kg

DRUGS (7)
  1. TYLENOL (CAPLET) [Suspect]
     Indication: PYREXIA
     Route: 048
  2. TYLENOL (CAPLET) [Suspect]
     Dosage: 500 MG ON 03-JAN-03, 4 DOSES (500 MG PER DOSE) ON 04-JAN-03 AND 2 DOSES ON 05-JAN-2003.
     Route: 048
  3. TYLENOL (CAPLET) [Suspect]
     Indication: ABDOMINAL PAIN
     Dosage: 500 MG ON 03-JAN-03, 4 DOSES (500 MG PER DOSE) ON 04-JAN-03 AND 2 DOSES ON 05-JAN-2003.
     Route: 048
  4. TYLENOL (CAPLET) [Suspect]
     Route: 048
  5. TYLENOL (CAPLET) [Suspect]
     Indication: RESPIRATORY SYNCYTIAL VIRUS INFECTION
     Dosage: 500 MG ON 03-JAN-03, 4 DOSES (500 MG PER DOSE) ON 04-JAN-03 AND 2 DOSES ON 05-JAN-2003.
     Route: 048
  6. TYLENOL (CAPLET) [Suspect]
     Route: 048
  7. CEFZIL [Concomitant]
     Indication: UPPER RESPIRATORY TRACT INFECTION

REACTIONS (28)
  - ACCIDENTAL OVERDOSE [None]
  - ACIDOSIS [None]
  - ACTIVATED PARTIAL THROMBOPLASTIN TIME PROLONGED [None]
  - ACUTE HEPATIC FAILURE [None]
  - BLOOD GLUCOSE INCREASED [None]
  - BLOOD PRESSURE DECREASED [None]
  - BRONCHOPNEUMONIA [None]
  - CARDIAC FAILURE [None]
  - CARDIO-RESPIRATORY ARREST [None]
  - CRYING [None]
  - DECREASED APPETITE [None]
  - DIARRHOEA [None]
  - DRUG TOXICITY [None]
  - ENCEPHALOPATHY [None]
  - GASTROINTESTINAL SOUNDS ABNORMAL [None]
  - HEART RATE INCREASED [None]
  - HEPATOMEGALY [None]
  - INTERNATIONAL NORMALISED RATIO INCREASED [None]
  - LETHARGY [None]
  - MULTI-ORGAN FAILURE [None]
  - NAUSEA [None]
  - PNEUMONIA VIRAL [None]
  - RESPIRATORY DISTRESS [None]
  - SEPSIS [None]
  - SOMNOLENCE [None]
  - THROMBOCYTOPENIA [None]
  - URINE OUTPUT DECREASED [None]
  - VOMITING [None]
